FAERS Safety Report 8321835-9 (Version None)
Quarter: 2012Q2

REPORT INFORMATION
  Report Type: 
  Country: None (occurrence: None)
  Receive Date: 20120430
  Receipt Date: 20120403
  Transmission Date: 20120825
  Serious: Yes (Other)
  Sender: FDA-Public Use
  Company Number: US-GLAXOSMITHKLINE-A0972642A

PATIENT
  Sex: Female

DRUGS (1)
  1. TYKERB [Suspect]
     Indication: BREAST CANCER
     Dosage: 750MG TWICE PER DAY
     Route: 048

REACTIONS (3)
  - MALAISE [None]
  - TOXICITY TO VARIOUS AGENTS [None]
  - TREMOR [None]
